FAERS Safety Report 8346932-3 (Version None)
Quarter: 2012Q2

REPORT INFORMATION
  Report Type: 
  Country: None (occurrence: None)
  Receive Date: 20120509
  Receipt Date: 20120507
  Transmission Date: 20120825
  Serious: Yes (Hospitalization)
  Sender: FDA-Public Use
  Company Number: PHHY2012IT039118

PATIENT
  Sex: Female

DRUGS (2)
  1. ATENOLOL [Suspect]
  2. MIRTAZAPINE [Suspect]

REACTIONS (3)
  - BRADYPHRENIA [None]
  - SOPOR [None]
  - BRADYKINESIA [None]
